FAERS Safety Report 18451690 (Version 1)
Quarter: 2020Q4

REPORT INFORMATION
  Report Type: Spontaneous
  Country: US (occurrence: US)
  Receive Date: 20201102
  Receipt Date: 20201102
  Transmission Date: 20210114
  Serious: Yes (Other)
  Sender: FDA-Public Use
  Company Number: US-AMGEN INC.-USASP2020174059

PATIENT

DRUGS (1)
  1. AIMOVIG [Suspect]
     Active Substance: ERENUMAB-AOOE
     Indication: PRODUCT USED FOR UNKNOWN INDICATION
     Dosage: UNK
     Route: 065

REACTIONS (12)
  - Pain [Unknown]
  - Urticaria [Unknown]
  - Diabetes mellitus [Unknown]
  - Dizziness [Unknown]
  - Dyspnoea [Unknown]
  - Autoimmune thyroiditis [Unknown]
  - Migraine [Unknown]
  - Disturbance in attention [Unknown]
  - Eye irritation [Unknown]
  - Speech disorder [Unknown]
  - Transfusion [Unknown]
  - Insomnia [Unknown]
